FAERS Safety Report 19457245 (Version 3)
Quarter: 2021Q3

REPORT INFORMATION
  Report Type: Report from Study
  Country: BR (occurrence: BR)
  Receive Date: 20210624
  Receipt Date: 20210823
  Transmission Date: 20211014
  Serious: Yes (Life-Threatening)
  Sender: FDA-Public Use
  Company Number: NVSC2021BR139752

PATIENT
  Age: 49 Year
  Sex: Female
  Weight: 86 kg

DRUGS (8)
  1. PIQRAY [Suspect]
     Active Substance: ALPELISIB
     Dosage: 300 DF
     Route: 065
     Dates: start: 20210814
  2. RIBOCICLIB. [Concomitant]
     Active Substance: RIBOCICLIB
     Indication: PRODUCT USED FOR UNKNOWN INDICATION
     Dosage: UNK (KISQALI)
     Route: 065
     Dates: start: 20190726
  3. PIQRAY [Suspect]
     Active Substance: ALPELISIB
     Indication: PRODUCT USED FOR UNKNOWN INDICATION
     Dosage: 1 DF, QD
     Route: 048
     Dates: start: 20210618
  4. RIBOCICLIB. [Concomitant]
     Active Substance: RIBOCICLIB
     Dosage: UNK
     Route: 065
     Dates: start: 20190726
  5. FEMARA [Concomitant]
     Active Substance: LETROZOLE
     Indication: MENOPAUSE
     Dosage: UNK
     Route: 065
     Dates: start: 20190726
  6. ZOLADEX [Concomitant]
     Active Substance: GOSERELIN ACETATE
     Indication: PRODUCT USED FOR UNKNOWN INDICATION
     Dosage: UNK
     Route: 065
  7. XGEVA [Concomitant]
     Active Substance: DENOSUMAB
     Indication: PRODUCT USED FOR UNKNOWN INDICATION
     Dosage: UNK
     Route: 065
  8. FASLODEX [Concomitant]
     Active Substance: FULVESTRANT
     Indication: PRODUCT USED FOR UNKNOWN INDICATION
     Dosage: EVERY 15 DAYS
     Route: 065
     Dates: start: 20210617

REACTIONS (22)
  - Nodule [Unknown]
  - Blood triglycerides increased [Unknown]
  - Tinnitus [Recovered/Resolved]
  - Fatigue [Unknown]
  - Blood pressure increased [Unknown]
  - Ear pain [Unknown]
  - Blood glucose increased [Not Recovered/Not Resolved]
  - Tinnitus [Recovered/Resolved]
  - Dry skin [Unknown]
  - Condition aggravated [Not Recovered/Not Resolved]
  - Tinnitus [Recovered/Resolved]
  - Swelling [Recovered/Resolved]
  - Gene mutation [Unknown]
  - Insomnia [Not Recovered/Not Resolved]
  - Vision blurred [Recovered/Resolved]
  - Pruritus [Unknown]
  - Blood pressure increased [Recovered/Resolved]
  - Breast swelling [Unknown]
  - Breast pain [Unknown]
  - Blood pressure decreased [Unknown]
  - Toothache [Unknown]
  - Headache [Not Recovered/Not Resolved]

NARRATIVE: CASE EVENT DATE: 202107
